FAERS Safety Report 19585098 (Version 1)
Quarter: 2021Q3

REPORT INFORMATION
  Report Type: Other
  Country: US (occurrence: US)
  Receive Date: 20210720
  Receipt Date: 20210720
  Transmission Date: 20211014
  Serious: No
  Sender: FDA-Public Use
  Company Number: US-ROCHE-2740238

PATIENT
  Age: 51 Year
  Sex: Female

DRUGS (1)
  1. ATEZOLIZUMAB. [Suspect]
     Active Substance: ATEZOLIZUMAB
     Indication: NEUROENDOCRINE CARCINOMA
     Route: 065

REACTIONS (1)
  - Chest pain [Unknown]
